FAERS Safety Report 4545965-2 (Version None)
Quarter: 2005Q1

REPORT INFORMATION
  Report Type: 
  Country: None (occurrence: None)
  Receive Date: 20050106
  Receipt Date: 20041222
  Transmission Date: 20050727
  Serious: Yes (Other)
  Sender: FDA-Public Use
  Company Number: GB-JNJFOC-20050100691

PATIENT
  Age: 61 Year
  Sex: Female
  Weight: 50 kg

DRUGS (2)
  1. LYRINEL [Suspect]
     Indication: URINARY INCONTINENCE
     Route: 049
  2. EFFEXOR [Suspect]
     Indication: DEPRESSION
     Dosage: 75 MG MANE AND 112.5 MG NOCTE
     Route: 049
     Dates: start: 20020101, end: 20040728

REACTIONS (6)
  - BLOOD BILIRUBIN INCREASED [None]
  - JAUNDICE [None]
  - LIVER FUNCTION TEST ABNORMAL [None]
  - OCULAR ICTERUS [None]
  - PRURITUS [None]
  - RASH ERYTHEMATOUS [None]
